FAERS Safety Report 6993144-1 (Version None)
Quarter: 2010Q3

REPORT INFORMATION
  Report Type: 
  Country: None (occurrence: None)
  Receive Date: 20100917
  Receipt Date: 20100330
  Transmission Date: 20110219
  Serious: Yes (Other)
  Sender: FDA-Public Use
  Company Number: US-ASTRAZENECA-2006UW04646

PATIENT
  Age: 491 Month
  Sex: Female
  Weight: 89.4 kg

DRUGS (6)
  1. SEROQUEL [Suspect]
     Indication: ANXIETY
     Dosage: 100 TO 150 MG
     Route: 048
     Dates: start: 20030601
  2. SEROQUEL [Suspect]
     Indication: DEPRESSION
     Dosage: 100 TO 150 MG
     Route: 048
     Dates: start: 20030601
  3. SEROQUEL [Suspect]
     Dosage: 25 TO 100 MG
     Route: 048
     Dates: start: 20030701, end: 20050601
  4. SEROQUEL [Suspect]
     Dosage: 25 TO 100 MG
     Route: 048
     Dates: start: 20030701, end: 20050601
  5. KEPPRA [Concomitant]
     Dosage: 500 MG,750 MG THREE TIMES A DAY
  6. ZOLOFT [Concomitant]
     Indication: DEPRESSION
     Dosage: 50 MG

REACTIONS (2)
  - CHEST PAIN [None]
  - PANCREATITIS [None]
